FAERS Safety Report 7268996-0 (Version None)
Quarter: 2011Q1

REPORT INFORMATION
  Report Type: 
  Country: None (occurrence: None)
  Receive Date: 20110201
  Receipt Date: 20110131
  Transmission Date: 20110831
  Serious: Yes (Other)
  Sender: FDA-Public Use
  Company Number: ES-ABBOTT-11P-144-0700998-00

PATIENT
  Age: 54 Year
  Sex: Male
  Weight: 66.7 kg

DRUGS (2)
  1. CO-VALSR [Concomitant]
     Indication: HYPERTENSION
     Route: 048
     Dates: start: 20090801
  2. HUMIRA [Suspect]
     Indication: PSORIASIS
     Route: 058
     Dates: start: 20090401, end: 20110101

REACTIONS (5)
  - OTITIS EXTERNA [None]
  - PURULENT DISCHARGE [None]
  - SUBCUTANEOUS ABSCESS [None]
  - AURICULAR SWELLING [None]
  - AURICULAR PERICHONDRITIS [None]
